FAERS Safety Report 4689170-8 (Version None)
Quarter: 2005Q2

REPORT INFORMATION
  Report Type: 
  Country: None (occurrence: None)
  Receive Date: 20050613
  Receipt Date: 20050506
  Transmission Date: 20051028
  Serious: Yes (Hospitalization)
  Sender: FDA-Public Use
  Company Number: 2005UW07087

PATIENT
  Age: 63 Year
  Sex: Male

DRUGS (17)
  1. SEROQUEL [Suspect]
     Indication: SCHIZOPHRENIA
     Route: 048
     Dates: start: 20031224, end: 20050428
  2. SEROQUEL [Suspect]
     Route: 048
     Dates: end: 20050503
  3. SEROQUEL [Suspect]
     Route: 048
     Dates: start: 20050503
  4. SEROQUEL [Suspect]
     Route: 048
     Dates: start: 20050506, end: 20050509
  5. HALDOL [Concomitant]
     Indication: SCHIZOPHRENIA
     Dosage: EVERY 28 DAYS
     Route: 030
     Dates: start: 20050505
  6. HALDOL [Concomitant]
     Route: 030
  7. TRILEPTAL [Concomitant]
     Indication: CONVULSION
     Dosage: 300 MG AM; 600 MG PM
     Route: 048
  8. ENALAPRIL MALEATE [Concomitant]
     Indication: HYPERTENSION
     Route: 048
     Dates: start: 20040530, end: 20050506
  9. HYDROCHLOROTHIAZIDE [Concomitant]
     Indication: HYPERTENSION
     Route: 048
     Dates: start: 20040530, end: 20050506
  10. ASPIRIN [Concomitant]
     Route: 048
  11. LIPITOR [Concomitant]
     Route: 048
  12. TRAZODONE [Concomitant]
  13. CLONAZEPAM [Concomitant]
  14. COGENTIN [Concomitant]
  15. GEODON [Concomitant]
     Route: 030
  16. VISTARIL [Concomitant]
     Route: 048
  17. ATIVAN [Concomitant]
     Route: 030

REACTIONS (16)
  - ABNORMAL BEHAVIOUR [None]
  - BALANCE DISORDER [None]
  - BLOOD CHLORIDE DECREASED [None]
  - BLOOD CREATININE INCREASED [None]
  - BLOOD SODIUM DECREASED [None]
  - BLOOD UREA INCREASED [None]
  - DEPRESSED LEVEL OF CONSCIOUSNESS [None]
  - DIFFICULTY IN WALKING [None]
  - DIZZINESS [None]
  - DYSPNOEA EXERTIONAL [None]
  - FALL [None]
  - HAEMATOCRIT DECREASED [None]
  - HAEMOGLOBIN DECREASED [None]
  - HYPERTENSION [None]
  - HYPOTENSION [None]
  - HYPOTHERMIA [None]
